FAERS Safety Report 6799848-8 (Version None)
Quarter: 2010Q2

REPORT INFORMATION
  Report Type: 
  Country: None (occurrence: None)
  Receive Date: 20100615
  Receipt Date: 20100607
  Transmission Date: 20101027
  Serious: Yes (Other)
  Sender: FDA-Public Use
  Company Number: 2010SP031954

PATIENT
  Age: 35 Year
  Sex: Female
  Weight: 61 kg

DRUGS (8)
  1. REMERGIL (MIRTAZAPINE /01293201/) [Suspect]
     Indication: DEPRESSION
     Dosage: 15 MG;PO; 30 MG;PO; 45 MG;PO
     Route: 048
     Dates: start: 20091101, end: 20100114
  2. REMERGIL (MIRTAZAPINE /01293201/) [Suspect]
     Indication: DEPRESSION
     Dosage: 15 MG;PO; 30 MG;PO; 45 MG;PO
     Route: 048
     Dates: start: 20100115, end: 20100119
  3. REMERGIL (MIRTAZAPINE /01293201/) [Suspect]
     Indication: DEPRESSION
     Dosage: 15 MG;PO; 30 MG;PO; 45 MG;PO
     Route: 048
     Dates: start: 20100120, end: 20100125
  4. PROMETHAZIN (PRMOETHAZINE HYDROCHLORIDE) [Suspect]
     Indication: DRUG USE FOR UNKNOWN INDICATION
     Dosage: 100 MG;PO; 50 MG;PO
     Route: 048
     Dates: start: 20100116, end: 20100324
  5. PROMETHAZIN (PRMOETHAZINE HYDROCHLORIDE) [Suspect]
     Indication: DRUG USE FOR UNKNOWN INDICATION
     Dosage: 100 MG;PO; 50 MG;PO
     Route: 048
     Dates: start: 20100325
  6. JODID [Concomitant]
  7. CONCOR [Concomitant]
  8. HCT HEXAL [Concomitant]

REACTIONS (5)
  - CARDIAC HYPERTROPHY [None]
  - DEPRESSION [None]
  - ELECTROCARDIOGRAM QT PROLONGED [None]
  - ELECTROCARDIOGRAM REPOLARISATION ABNORMALITY [None]
  - LABORATORY TEST INTERFERENCE [None]
